FAERS Safety Report 7365865-2 (Version None)
Quarter: 2011Q1

REPORT INFORMATION
  Report Type: 
  Country: None (occurrence: None)
  Receive Date: 20110322
  Receipt Date: 20110314
  Transmission Date: 20110831
  Serious: Yes (Hospitalization)
  Sender: FDA-Public Use
  Company Number: US-US-EMD SERONO, INC.-233833J09USA

PATIENT
  Sex: Female
  Weight: 57 kg

DRUGS (2)
  1. REBIF [Suspect]
     Route: 058
     Dates: start: 20090415, end: 20090901
  2. REBIF [Suspect]
     Indication: MULTIPLE SCLEROSIS
     Route: 058
     Dates: start: 20060101, end: 20060101

REACTIONS (2)
  - BREAST CANCER [None]
  - BREAST CANCER IN SITU [None]
